FAERS Safety Report 9291323 (Version 2)
Quarter: 2013Q3

REPORT INFORMATION
  Report Type: Spontaneous
  Country: US (occurrence: US)
  Receive Date: 20130515
  Receipt Date: 20130701
  Transmission Date: 20140515
  Serious: Yes (Other)
  Sender: FDA-Public Use
  Company Number: US-GLAXOSMITHKLINE-A0989159A

PATIENT
  Age: 61 Year
  Sex: Female
  Weight: 74.46 kg

DRUGS (11)
  1. BENLYSTA [Suspect]
     Indication: SYSTEMIC LUPUS ERYTHEMATOSUS
     Route: 042
     Dates: start: 20120719
  2. PLAQUENIL [Concomitant]
     Dosage: 200MG PER DAY
  3. METFORMIN [Concomitant]
     Indication: TYPE 2 DIABETES MELLITUS
     Dosage: 2000MG PER DAY
  4. AMARYL [Concomitant]
     Indication: TYPE 2 DIABETES MELLITUS
     Dosage: 5MG PER DAY
  5. VICTOZA [Concomitant]
     Indication: TYPE 2 DIABETES MELLITUS
     Dosage: 12.5MG PER DAY
  6. FOLIC ACID [Concomitant]
     Dosage: 1MG PER DAY
  7. SALAGEN [Concomitant]
  8. FISH OIL [Concomitant]
     Dosage: 5000MG PER DAY
  9. VITAMIN D [Concomitant]
     Dosage: 5000IU PER DAY
  10. AMBIEN [Concomitant]
     Dosage: 10MG AT NIGHT
  11. PREDNISONE [Concomitant]

REACTIONS (5)
  - Hypoglycaemia [Recovered/Resolved]
  - Dizziness [Recovered/Resolved]
  - Presyncope [Recovered/Resolved]
  - Pain in extremity [Recovered/Resolved]
  - Arthralgia [Recovered/Resolved]
